FAERS Safety Report 8188244-7 (Version None)
Quarter: 2012Q1

REPORT INFORMATION
  Report Type: 
  Country: None (occurrence: None)
  Receive Date: 20120306
  Receipt Date: 20120227
  Transmission Date: 20120608
  Serious: Yes (Life-Threatening, Hospitalization)
  Sender: FDA-Public Use
  Company Number: JP-PFIZER INC-2012017957

PATIENT
  Age: 89 Year
  Sex: Male

DRUGS (8)
  1. ALLOPURINOL [Concomitant]
     Indication: HYPERURICAEMIA
     Dosage: 200 MG/DAY
     Route: 048
  2. ENALAPRIL MALEATE [Concomitant]
     Indication: HYPERTENSION
     Dosage: 10 MG/DAY
     Route: 048
  3. HOKUNALIN [Concomitant]
     Indication: ASTHMA
     Dosage: 2 MG/DAY
  4. SINGULAIR [Concomitant]
     Indication: ASTHMA
     Dosage: 10 MG/DAY
     Route: 048
  5. ZOSYN [Suspect]
     Indication: PNEUMONIA
     Dosage: 4.5 G, 3X/DAY
     Route: 041
     Dates: start: 20111229, end: 20111229
  6. FAMOTIDINE [Concomitant]
     Indication: GASTRITIS
     Dosage: 40 MG/DAY
     Route: 048
  7. CARVEDILOL [Concomitant]
     Indication: HYPERTENSION
     Dosage: 5 MG/DAY
     Route: 048
  8. VOLTAREN [Suspect]
     Indication: PNEUMONIA
     Dosage: 25 MG/DAY
     Route: 054

REACTIONS (1)
  - ASTHMA [None]
